FAERS Safety Report 14753874 (Version 1)
Quarter: 2018Q2

REPORT INFORMATION
  Report Type: Spontaneous
  Country: US (occurrence: US)
  Receive Date: 20180412
  Receipt Date: 20180412
  Transmission Date: 20180711
  Serious: Yes (Other)
  Sender: FDA-Public Use
  Company Number: US-FRESENIUS KABI-FK201804439

PATIENT

DRUGS (1)
  1. INDOMETHACIN (MANUFACTURER UNKNOWN) [Suspect]
     Active Substance: INDOMETHACIN
     Indication: TOCOLYSIS
     Route: 064

REACTIONS (8)
  - Ductus arteriosus premature closure [Recovered/Resolved]
  - Right ventricular hypertrophy [Recovered/Resolved]
  - Intentional product use issue [Unknown]
  - Tricuspid valve incompetence [Not Recovered/Not Resolved]
  - Right atrial dilatation [Unknown]
  - Right ventricular dysfunction [Recovered/Resolved]
  - Right ventricular hypertension [Recovered/Resolved]
  - Foetal exposure during pregnancy [Unknown]
